FAERS Safety Report 25095350 (Version 1)
Quarter: 2025Q1

REPORT INFORMATION
  Report Type: Spontaneous
  Country: FR (occurrence: FR)
  Receive Date: 20250319
  Receipt Date: 20250319
  Transmission Date: 20250409
  Serious: Yes (Other)
  Sender: GLAND PHARMA LTD
  Company Number: FR-GLANDPHARMA-FR-2025GLNLIT00734

PATIENT
  Age: 76 Year
  Sex: Male

DRUGS (5)
  1. PACLITAXEL [Suspect]
     Active Substance: PACLITAXEL
     Indication: Non-small cell lung cancer
     Route: 065
  2. PACLITAXEL [Suspect]
     Active Substance: PACLITAXEL
     Route: 065
  3. BEVACIZUMAB [Suspect]
     Active Substance: BEVACIZUMAB
     Indication: Non-small cell lung cancer
     Route: 065
  4. PEMBROLIZUMAB [Concomitant]
     Active Substance: PEMBROLIZUMAB
     Indication: Lung adenocarcinoma
     Route: 065
  5. NAVELBINE [Concomitant]
     Active Substance: VINORELBINE TARTRATE
     Indication: Lung adenocarcinoma
     Route: 065

REACTIONS (3)
  - Nephrotic syndrome [Unknown]
  - Neuropathy peripheral [Unknown]
  - Drug intolerance [Unknown]
